FAERS Safety Report 24217711 (Version 1)
Quarter: 2024Q3

REPORT INFORMATION
  Report Type: Report from Study
  Country: DE (occurrence: DE)
  Receive Date: 20240816
  Receipt Date: 20240816
  Transmission Date: 20241016
  Serious: Yes (Death, Other)
  Sender: MYLAN
  Company Number: DE-IPSEN Group, Research and Development-2023-16326

PATIENT
  Age: 79 Year
  Sex: Male
  Weight: 94 kg

DRUGS (6)
  1. SORAFENIB [Suspect]
     Active Substance: SORAFENIB
     Indication: Hepatocellular carcinoma
     Dosage: 800 MILLIGRAM, QD
     Route: 065
     Dates: start: 20240425, end: 20240527
  2. CABOZANTINIB [Suspect]
     Active Substance: CABOZANTINIB
     Indication: Hepatocellular carcinoma
     Dosage: 40 MILLIGRAM, QD
     Route: 065
     Dates: start: 20230531, end: 20240326
  3. POLYETHYLENE GLYCOLS [Concomitant]
     Active Substance: POLYETHYLENE GLYCOLS
     Dosage: UNK
     Route: 065
     Dates: start: 20230807, end: 20230807
  4. FOSFOMYCIN [Concomitant]
     Active Substance: FOSFOMYCIN
     Dosage: UNK
     Route: 065
     Dates: start: 20240115, end: 20240115
  5. METAMIZOLE [Concomitant]
     Active Substance: METAMIZOLE
     Dosage: UNK
     Route: 065
     Dates: start: 20230522, end: 20230801
  6. RAMIPRIL [Concomitant]
     Active Substance: RAMIPRIL
     Dosage: UNK
     Route: 065
     Dates: start: 20230201, end: 20230201

REACTIONS (3)
  - Acute kidney injury [Fatal]
  - Dysuria [Recovered/Resolved]
  - Off label use [Unknown]

NARRATIVE: CASE EVENT DATE: 20240115
